FAERS Safety Report 16079698 (Version 1)
Quarter: 2019Q1

REPORT INFORMATION
  Report Type: Spontaneous
  Country: CA (occurrence: CA)
  Receive Date: 20190315
  Receipt Date: 20190315
  Transmission Date: 20190418
  Serious: Yes (Other)
  Sender: FDA-Public Use
  Company Number: CA-TEVA-2019-CA-1022725

PATIENT
  Age: 49 Year
  Sex: Female

DRUGS (4)
  1. ARAVA [Concomitant]
     Active Substance: LEFLUNOMIDE
  2. PLAQUENIL [Concomitant]
     Active Substance: HYDROXYCHLOROQUINE SULFATE
  3. ENBREL [Suspect]
     Active Substance: ETANERCEPT
     Indication: PRODUCT USED FOR UNKNOWN INDICATION
     Route: 065
  4. METHOTREXATE. [Suspect]
     Active Substance: METHOTREXATE
     Indication: PRODUCT USED FOR UNKNOWN INDICATION
     Route: 065

REACTIONS (4)
  - Sleep disorder due to a general medical condition [Recovering/Resolving]
  - Rheumatoid arthritis [Recovering/Resolving]
  - Pneumonitis [Recovering/Resolving]
  - Drug effect decreased [Recovering/Resolving]
